FAERS Safety Report 21057725 (Version 5)
Quarter: 2022Q4

REPORT INFORMATION
  Report Type: Report from Study
  Country: BR (occurrence: BR)
  Receive Date: 20220708
  Receipt Date: 20221104
  Transmission Date: 20230112
  Serious: Yes (Hospitalization)
  Sender: FDA-Public Use
  Company Number: BR-JNJFOC-20220707502

PATIENT
  Age: 48 Year
  Sex: Male
  Weight: 84 kg

DRUGS (1)
  1. INFLIXIMAB [Suspect]
     Active Substance: INFLIXIMAB
     Indication: Crohn^s disease
     Dosage: 100 MG ONCE EVERY 8 WEEKS
     Route: 041
     Dates: start: 20180802, end: 202110

REACTIONS (5)
  - Pneumonia [Unknown]
  - Spleen tuberculosis [Unknown]
  - Abdominal distension [Unknown]
  - COVID-19 [Unknown]
  - Surgery [Unknown]

NARRATIVE: CASE EVENT DATE: 20211223
